FAERS Safety Report 6016169-1 (Version None)
Quarter: 2008Q4

REPORT INFORMATION
  Report Type: 
  Country: None (occurrence: None)
  Receive Date: 20081216
  Receipt Date: 20080317
  Transmission Date: 20090506
  Serious: Yes (Other)
  Sender: FDA-Public Use
  Company Number: US-WYE-H03169608

PATIENT
  Age: 47 Year
  Sex: Male
  Weight: 90.8 kg

DRUGS (5)
  1. EFFEXOR XR [Suspect]
     Indication: DEPRESSION
     Dosage: 300 MG 1X PER 1 DAY, ORAL
     Route: 048
     Dates: start: 20060101
  2. RISPERDAL [Concomitant]
  3. LITHIUM CARBONATE [Concomitant]
  4. SPIRIVA [Concomitant]
  5. DEPAKOTE [Concomitant]

REACTIONS (2)
  - DRUG EFFECT DECREASED [None]
  - SUICIDAL IDEATION [None]
